FAERS Safety Report 16889555 (Version 1)
Quarter: 2019Q4

REPORT INFORMATION
  Report Type: Spontaneous
  Country: US (occurrence: US)
  Receive Date: 20190810
  Receipt Date: 20190810
  Transmission Date: 20200122
  Serious: Yes (Death, Hospitalization)
  Sender: FDA-Public Use
  Company Number: None

PATIENT
  Age: 66 Year
  Sex: Male
  Weight: 85 kg

DRUGS (1)
  1. TAXOTERE [Suspect]
     Active Substance: DOCETAXEL
     Dates: end: 20190731

REACTIONS (8)
  - Blood pressure decreased [None]
  - Dyspnoea [None]
  - Hypoxia [None]
  - Large intestine perforation [None]
  - Intestinal ischaemia [None]
  - Gastrointestinal necrosis [None]
  - Diarrhoea [None]
  - Septic shock [None]

NARRATIVE: CASE EVENT DATE: 20190808
